FAERS Safety Report 18394201 (Version 8)
Quarter: 2022Q1

REPORT INFORMATION
  Report Type: Report from Study
  Country: US (occurrence: US)
  Receive Date: 20201017
  Receipt Date: 20220227
  Transmission Date: 20220423
  Serious: Yes (Other)
  Sender: FDA-Public Use
  Company Number: US-NOVARTISPH-NVSC2020US275229

PATIENT
  Age: 73 Year
  Sex: Female

DRUGS (1)
  1. PROMACTA [Suspect]
     Active Substance: ELTROMBOPAG OLAMINE
     Indication: Product used for unknown indication
     Dosage: UNK
     Route: 048

REACTIONS (15)
  - Bipolar disorder [Unknown]
  - Renal impairment [Unknown]
  - Cataract [Unknown]
  - Vertigo [Unknown]
  - Fall [Unknown]
  - Skin burning sensation [Unknown]
  - COVID-19 [Unknown]
  - Onychoclasis [Unknown]
  - Dry mouth [Unknown]
  - Dizziness [Unknown]
  - Cough [Unknown]
  - Platelet count decreased [Unknown]
  - Platelet count abnormal [Unknown]
  - Nausea [Unknown]
  - Decreased appetite [Unknown]

NARRATIVE: CASE EVENT DATE: 20200201
